FAERS Safety Report 8287684-5 (Version None)
Quarter: 2012Q2

REPORT INFORMATION
  Report Type: 
  Country: None (occurrence: None)
  Receive Date: 20120416
  Receipt Date: 20120411
  Transmission Date: 20120825
  Serious: Yes (Death, Other)
  Sender: FDA-Public Use
  Company Number: PHHY2012MA031134

PATIENT
  Sex: Male

DRUGS (3)
  1. PURINETHOL [Concomitant]
     Dosage: 200 MG A DAY
     Route: 048
  2. HYDREA [Concomitant]
     Dosage: 2500 MG PER DAY
  3. GLEEVEC [Suspect]
     Indication: CHRONIC MYELOID LEUKAEMIA
     Dosage: 600 MG A DAY
     Route: 048
     Dates: start: 20050712, end: 20120103

REACTIONS (5)
  - SPLENOMEGALY [None]
  - ANAEMIA [None]
  - DEATH [None]
  - GENERAL PHYSICAL HEALTH DETERIORATION [None]
  - NO THERAPEUTIC RESPONSE [None]
